FAERS Safety Report 13585930 (Version 3)
Quarter: 2024Q1

REPORT INFORMATION
  Report Type: Spontaneous
  Country: US (occurrence: US)
  Receive Date: 20170526
  Receipt Date: 20240103
  Transmission Date: 20240409
  Serious: No
  Sender: FDA-Public Use
  Company Number: US-BAXALTA-2017BLT004318

PATIENT
  Age: 58 Year
  Sex: Female
  Weight: 53.06 kg

DRUGS (4)
  1. GAMMAGARD LIQUID [Suspect]
     Active Substance: HUMAN IMMUNOGLOBULIN G
     Indication: Anaemia
     Dosage: 15 GRAM, 1/WEEK
     Route: 058
     Dates: start: 2004
  2. GAMMAGARD LIQUID [Suspect]
     Active Substance: HUMAN IMMUNOGLOBULIN G
     Indication: Primary immunodeficiency syndrome
     Dosage: 15 GRAM, 1/WEEK
     Route: 058
     Dates: start: 2007
  3. EVOXAC [Concomitant]
     Active Substance: CEVIMELINE HYDROCHLORIDE
     Dosage: UNK
     Route: 065
  4. ARMOUR THYROID [Concomitant]
     Active Substance: THYROID, PORCINE
     Dosage: UNK
     Route: 065

REACTIONS (13)
  - Blood urine present [Recovering/Resolving]
  - Protein urine present [Recovering/Resolving]
  - White blood cell count decreased [Recovering/Resolving]
  - Neuralgia [Unknown]
  - Fear [Unknown]
  - Peripheral swelling [Unknown]
  - Loss of personal independence in daily activities [Unknown]
  - Anger [Unknown]
  - Product temperature excursion issue [Unknown]
  - Hepatic enzyme increased [Unknown]
  - Rash [Unknown]
  - Arthralgia [Unknown]
  - Product storage error [Unknown]

NARRATIVE: CASE EVENT DATE: 20170301
